FAERS Safety Report 9385172 (Version 2)
Quarter: 2013Q3

REPORT INFORMATION
  Report Type: Report from Study
  Country: US (occurrence: US)
  Receive Date: 20130705
  Receipt Date: 20130724
  Transmission Date: 20140515
  Serious: Yes (Hospitalization)
  Sender: FDA-Public Use
  Company Number: US-MERCK-1307USA002591

PATIENT
  Sex: Male

DRUGS (2)
  1. VORINOSTAT [Suspect]
     Dosage: 200 MG, QDX14 DAYS
     Route: 048
     Dates: start: 20130422
  2. TEMSIROLIMUS [Suspect]
     Dosage: 25 MG, QW
     Route: 042
     Dates: start: 20130422

REACTIONS (1)
  - Dehydration [Recovered/Resolved]
